FAERS Safety Report 24221519 (Version 1)
Quarter: 2024Q3

REPORT INFORMATION
  Report Type: Report from Study
  Country: US (occurrence: None)
  Receive Date: 20240819
  Receipt Date: 20240819
  Transmission Date: 20241017
  Serious: Yes (Other)
  Sender: ASTRAZENECA
  Company Number: 2023A142220

PATIENT
  Age: 25079 Day
  Sex: Female

DRUGS (21)
  1. CALQUENCE [Suspect]
     Active Substance: ACALABRUTINIB
     Indication: Chronic lymphocytic leukaemia
     Route: 048
  2. ASPIRIN [Concomitant]
     Active Substance: ASPIRIN
  3. ATENOLOL [Concomitant]
     Active Substance: ATENOLOL
  4. DILTIAZEM [Concomitant]
     Active Substance: DILTIAZEM
  5. FLONASE [Concomitant]
     Active Substance: FLUTICASONE PROPIONATE
  6. LASIX [Concomitant]
     Active Substance: FUROSEMIDE
  7. NORCO [Concomitant]
     Active Substance: ACETAMINOPHEN\HYDROCODONE BITARTRATE
  8. ISOSORBIDE [Concomitant]
     Active Substance: ISOSORBIDE
  9. LORAZEPAM [Concomitant]
     Active Substance: LORAZEPAM
  10. METFORMIN [Concomitant]
     Active Substance: METFORMIN HYDROCHLORIDE
  11. NITROGLYCERIN [Concomitant]
     Active Substance: NITROGLYCERIN
  12. ONDANSETRON [Concomitant]
     Active Substance: ONDANSETRON
  13. XARELTO [Concomitant]
     Active Substance: RIVAROXABAN
  14. SIMVASTATIN [Concomitant]
     Active Substance: SIMVASTATIN
  15. TAMSULOSIN [Concomitant]
     Active Substance: TAMSULOSIN
  16. TRULICITY [Concomitant]
     Active Substance: DULAGLUTIDE
  17. TYLENOL [Concomitant]
     Active Substance: ACETAMINOPHEN
  18. TRAMADOL DOXYCYCLINE [Concomitant]
  19. LEVAQUIN [Concomitant]
     Active Substance: LEVOFLOXACIN
  20. AMOXICILLIN [Concomitant]
     Active Substance: AMOXICILLIN
  21. AMPICILLIN [Concomitant]
     Active Substance: AMPICILLIN

REACTIONS (2)
  - Nephrolithiasis [Unknown]
  - White blood cell count increased [Unknown]

NARRATIVE: CASE EVENT DATE: 20220902
